FAERS Safety Report 4345128-X (Version None)
Quarter: 2004Q2

REPORT INFORMATION
  Report Type: 
  Country: None (occurrence: None)
  Receive Date: 20040420
  Receipt Date: 20040406
  Transmission Date: 20050107
  Serious: Yes (Life-Threatening, Hospitalization)
  Sender: FDA-Public Use
  Company Number: F01200400243

PATIENT
  Age: 65 Year
  Sex: Male

DRUGS (10)
  1. OXALIPLATIN [Suspect]
     Dosage: 130 MG/M2 Q3W
     Dates: start: 20040127, end: 20040127
  2. (CAPECITABINE) - TABLET 850 MG/M2 [Suspect]
     Dosage: ORAL 850 MG/M2 TWICE DAILY FROM D1 TO D15,Q3W
     Dates: start: 20040127, end: 20040208
  3. AVASTIN [Suspect]
     Dosage: 7.5 MG/KG OVER 30-90-MINUTES IV INFUSION ON DAY 1 Q3W
     Route: 042
     Dates: start: 20040127, end: 20040127
  4. ACETAMINOPHEN [Concomitant]
  5. IBUPROFEN [Concomitant]
  6. TEMAZEPAM [Concomitant]
  7. MULTI-VITAMINS [Concomitant]
  8. LOPERAMIDE HCL [Concomitant]
  9. IV FLUIDS [Concomitant]
  10. HYDROCODONE WITH ACETAMINOPHEN (HYDROCODONE+ACETAMINOPHEN) [Concomitant]

REACTIONS (18)
  - BLOOD ALBUMIN INCREASED [None]
  - BLOOD ALKALINE PHOSPHATASE INCREASED [None]
  - BLOOD GLUCOSE INCREASED [None]
  - BLOOD LACTATE DEHYDROGENASE INCREASED [None]
  - BLOOD PRESSURE DECREASED [None]
  - BLOOD UREA INCREASED [None]
  - COLD SWEAT [None]
  - CYANOSIS [None]
  - DYSPNOEA [None]
  - ENTERITIS [None]
  - GAMMA-GLUTAMYLTRANSFERASE INCREASED [None]
  - HEART RATE IRREGULAR [None]
  - NEUTROPHIL COUNT INCREASED [None]
  - OXYGEN SATURATION DECREASED [None]
  - PCO2 DECREASED [None]
  - PROTEIN TOTAL INCREASED [None]
  - SEPSIS [None]
  - WHITE BLOOD CELL COUNT INCREASED [None]
